FAERS Safety Report 4982186-3 (Version None)
Quarter: 2006Q2

REPORT INFORMATION
  Report Type: 
  Country: None (occurrence: None)
  Receive Date: 20060424
  Receipt Date: 20060424
  Transmission Date: 20061013
  Serious: Yes (Other)
  Sender: FDA-Public Use
  Company Number: None

PATIENT
  Age: 34 Year
  Sex: Female
  Weight: 67.1324 kg

DRUGS (2)
  1. LYRICA [Suspect]
     Indication: NEURALGIA
     Dosage: 50MG    TWICE DAILY   PO
     Route: 048
     Dates: start: 20060103, end: 20060126
  2. LYRICA [Suspect]
     Dosage: 25MG    TWICE DAILY   PO
     Route: 048
     Dates: start: 20060215, end: 20060222

REACTIONS (5)
  - AGGRESSION [None]
  - ANGER [None]
  - IMPATIENCE [None]
  - IRRITABILITY [None]
  - TREATMENT NONCOMPLIANCE [None]
